FAERS Safety Report 10211315 (Version 1)
Quarter: 2014Q2

REPORT INFORMATION
  Report Type: Spontaneous
  Country: JP (occurrence: JP)
  Receive Date: 20140602
  Receipt Date: 20140602
  Transmission Date: 20141212
  Serious: Yes (Disabling)
  Sender: FDA-Public Use
  Company Number: JP-GLAXOSMITHKLINE-B0994484A

PATIENT
  Age: 60 Year
  Sex: Female

DRUGS (8)
  1. HEPSERA 10 [Suspect]
     Indication: VIRAEMIA
     Dosage: 10MG PER DAY
     Route: 048
     Dates: start: 20060703, end: 20120130
  2. HEPSERA 10 [Suspect]
     Indication: VIRAEMIA
     Dosage: 10MG PER DAY
     Route: 048
     Dates: start: 20120702, end: 20140507
  3. ZEFIX 100 [Suspect]
     Indication: VIRAEMIA
     Dosage: 100MG PER DAY
     Route: 048
     Dates: start: 20050801, end: 20111107
  4. LIVACT [Concomitant]
     Indication: HYPOALBUMINAEMIA
     Dosage: 4.15G THREE TIMES PER DAY
     Route: 048
     Dates: start: 20031224
  5. L-CARTIN [Concomitant]
     Indication: HEPATIC CIRRHOSIS
     Dosage: 300MG THREE TIMES PER DAY
     Route: 048
     Dates: start: 20130507
  6. LACTULOSE [Concomitant]
     Indication: HEPATIC ENCEPHALOPATHY
     Dosage: 16.05G THREE TIMES PER DAY
     Route: 048
     Dates: start: 20130507
  7. GASTER D [Concomitant]
     Indication: PROPHYLAXIS AGAINST GASTROINTESTINAL ULCER
     Dosage: 20MG PER DAY
     Route: 048
     Dates: start: 20130910
  8. PROMAC [Concomitant]
     Indication: PROPHYLAXIS AGAINST GASTROINTESTINAL ULCER
     Dosage: 75MG TWICE PER DAY
     Route: 048
     Dates: start: 20050218

REACTIONS (12)
  - Fanconi syndrome [Unknown]
  - Pathological fracture [Unknown]
  - Bone pain [Unknown]
  - Back pain [Unknown]
  - Arthralgia [Unknown]
  - Pain [Unknown]
  - Blood uric acid decreased [Unknown]
  - Hypophosphataemia [Unknown]
  - Beta 2 microglobulin urine increased [Unknown]
  - Cervical vertebral fracture [Unknown]
  - Thoracic vertebral fracture [Unknown]
  - Thoracic vertebral fracture [Unknown]
